FAERS Safety Report 7184139-6 (Version None)
Quarter: 2010Q4

REPORT INFORMATION
  Report Type: 
  Country: None (occurrence: None)
  Receive Date: 20101123
  Receipt Date: 20100825
  Transmission Date: 20110411
  Serious: No
  Sender: FDA-Public Use
  Company Number: 017802

PATIENT
  Sex: Male

DRUGS (2)
  1. CIMZIA [Suspect]
     Dosage: SEE IMAGE
     Route: 058
     Dates: start: 20100501, end: 20100101
  2. CIMZIA [Suspect]
     Dosage: SEE IMAGE
     Route: 058
     Dates: start: 20100701

REACTIONS (2)
  - ABDOMINAL PAIN [None]
  - DRUG DISPENSING ERROR [None]
